FAERS Safety Report 16891580 (Version 1)
Quarter: 2019Q4

REPORT INFORMATION
  Report Type: Spontaneous
  Country: US (occurrence: US)
  Receive Date: 20190812
  Receipt Date: 20190812
  Transmission Date: 20200122
  Serious: Yes (Life-Threatening, Hospitalization)
  Sender: FDA-Public Use
  Company Number: None

PATIENT
  Age: 60 Year
  Sex: Female

DRUGS (1)
  1. ASPIRIN/OXYCODONE [Suspect]
     Active Substance: ASPIRIN\OXYCODONE HYDROCHLORIDE
     Dates: start: 20190704

REACTIONS (1)
  - Respiratory depression [None]

NARRATIVE: CASE EVENT DATE: 20190704
